FAERS Safety Report 4467079-2 (Version None)
Quarter: 2004Q4

REPORT INFORMATION
  Report Type: 
  Country: None (occurrence: None)
  Receive Date: 20041004
  Receipt Date: 20040920
  Transmission Date: 20050328
  Serious: Yes (Hospitalization, Other)
  Sender: FDA-Public Use
  Company Number: 2004234434US

PATIENT
  Age: 83 Year
  Sex: Female
  Weight: 80.7 kg

DRUGS (12)
  1. ELLENCE [Suspect]
     Indication: BREAST CANCER
     Dosage: 100 MG/M2, Q3 WKS; IV
     Route: 042
     Dates: start: 20040909, end: 20040909
  2. FLUOROURACIL [Suspect]
     Indication: BREAST CANCER
     Dosage: 500 MG/M2, Q3 WKS; IV
     Route: 042
     Dates: start: 20040909, end: 20040909
  3. CYCLOPHOSPHAMIDE [Suspect]
     Dosage: 500 MG/M2, Q3 WKS; IV
     Route: 042
     Dates: start: 20040909, end: 20040909
  4. CRESTOR [Concomitant]
  5. TYLENOL [Concomitant]
  6. VITAMIN C [Concomitant]
  7. VITAMIN B6 [Concomitant]
  8. VITAMIN B-12 [Concomitant]
  9. VITAMIN E [Concomitant]
  10. OCUVITE [Concomitant]
  11. FOLIC ACID [Concomitant]
  12. PSYLLIUM [Concomitant]

REACTIONS (9)
  - ANAL FISSURE [None]
  - ARTHRALGIA [None]
  - CHILLS [None]
  - CONSTIPATION [None]
  - FAECAL INCONTINENCE [None]
  - FEBRILE NEUTROPENIA [None]
  - HERPES ZOSTER [None]
  - MYALGIA [None]
  - PAIN IN EXTREMITY [None]
